FAERS Safety Report 16726025 (Version 2)
Quarter: 2019Q3

REPORT INFORMATION
  Report Type: Report from Study
  Country: ES (occurrence: ES)
  Receive Date: 20190821
  Receipt Date: 20190827
  Transmission Date: 20191005
  Serious: Yes (Hospitalization, Disabling)
  Sender: FDA-Public Use
  Company Number: ES-AMGEN-ESPNI2019131196

PATIENT
  Age: 83 Year
  Sex: Male
  Weight: 78 kg

DRUGS (14)
  1. HIDROXIL B12 B6 B1 [Concomitant]
     Active Substance: HYDROXOCOBALAMIN\PYRIDOXINE HYDROCHLORIDE\THIAMINE HYDROCHLORIDE
     Dosage: 250 MILLIGRAM
     Route: 048
     Dates: start: 20130702, end: 20181019
  2. ACIDO FOLICO [FOLIC ACID] [Concomitant]
     Dosage: 5 MILLIGRAM
     Route: 048
     Dates: start: 20130610, end: 20190416
  3. SALMETEROL [Concomitant]
     Active Substance: SALMETEROL
     Dosage: 50 MICROGRAM
     Dates: start: 20130610
  4. DARBEPOETIN ALFA [Concomitant]
     Active Substance: DARBEPOETIN ALFA
     Dosage: 20-80 MICROGRAM
     Route: 042
     Dates: start: 20130610, end: 20180917
  5. BROMURO DE TIOTROPIO [Concomitant]
     Dosage: 18 MICROGRAM
     Dates: start: 20130610
  6. PARICALCITOL. [Concomitant]
     Active Substance: PARICALCITOL
     Dosage: 2 MICROGRAM
     Route: 042
     Dates: start: 20130615, end: 20180716
  7. CALCIUM POLYSTYRENE SULPHONATE [Concomitant]
     Dosage: 7.5 GRAM
     Route: 048
     Dates: start: 20140520, end: 20190318
  8. ENOXAPARINA [Concomitant]
     Active Substance: ENOXAPARIN
     Dosage: 60 MILLIGRAM
     Dates: start: 20130610
  9. ETELCALCETIDE [Suspect]
     Active Substance: ETELCALCETIDE
     Dosage: UNK
     Route: 042
  10. SEVELAMER [Concomitant]
     Active Substance: SEVELAMER
     Dosage: 2.4 GRAM
     Route: 048
     Dates: start: 20131022, end: 20181116
  11. FLUTICASONE PROPIONATE. [Concomitant]
     Active Substance: FLUTICASONE PROPIONATE
     Dosage: 500 MICROGRAM
     Dates: start: 20130610
  12. ASPIRIN. [Concomitant]
     Active Substance: ASPIRIN
     Dosage: 100 MILLIGRAM
     Route: 048
     Dates: start: 20130610
  13. OMEPRAZOL [OMEPRAZOLE] [Concomitant]
     Active Substance: OMEPRAZOLE
     Dosage: 20 MILLIGRAM
     Route: 048
     Dates: start: 20130610
  14. ETELCALCETIDE [Suspect]
     Active Substance: ETELCALCETIDE
     Indication: HYPERPARATHYROIDISM SECONDARY
     Dosage: 2.5 MILLIGRAM
     Route: 042
     Dates: start: 20180102

REACTIONS (2)
  - Hypocalcaemia [Unknown]
  - Femur fracture [Recovered/Resolved]

NARRATIVE: CASE EVENT DATE: 20180505
